FAERS Safety Report 8850370 (Version 1)
Quarter: 2012Q4

REPORT INFORMATION
  Report Type: Report from Study
  Country: DE (occurrence: DE)
  Receive Date: 20121019
  Receipt Date: 20121019
  Transmission Date: 20130627
  Serious: Yes (Hospitalization)
  Sender: FDA-Public Use
  Company Number: DE-BAXTER-2012BAX019911

PATIENT
  Sex: Male

DRUGS (14)
  1. ENDOXAN 1G [Suspect]
     Indication: B-CELL LYMPHOMA
     Route: 042
     Dates: start: 20120208, end: 20120208
  2. RITUXIMAB [Suspect]
     Indication: B-CELL LYMPHOMA
     Route: 042
     Dates: start: 20120207, end: 20120207
  3. PEGFILGRASTIM [Suspect]
     Indication: B-CELL LYMPHOMA
     Route: 058
     Dates: start: 20120211, end: 20120211
  4. DOXORUBICIN [Suspect]
     Indication: B-CELL LYMPHOMA
     Route: 042
     Dates: start: 20120208, end: 20120208
  5. VINCRISTINE [Suspect]
     Indication: B-CELL LYMPHOMA
     Route: 042
     Dates: start: 20120208, end: 20120208
  6. PREDNISOLONE [Suspect]
     Indication: B-CELL LYMPHOMA
     Route: 048
     Dates: start: 20120208, end: 20120212
  7. GRANISETRON [Concomitant]
     Indication: EMESIS
     Route: 042
     Dates: start: 20120208
  8. ALLOPURINOL [Concomitant]
     Indication: URIC ACID DECREASED
     Route: 065
  9. SIMVASTATIN [Concomitant]
     Indication: HYPERLIPIDEMIA
     Route: 048
     Dates: start: 20120123
  10. LISINOPRIL [Concomitant]
     Indication: HYPERTENSION
     Route: 048
     Dates: start: 20120123
  11. HYDROCHLOROTHIAZIDE [Concomitant]
     Indication: DIURETIC THERAPY
     Route: 048
     Dates: start: 20120123
  12. DELIX [Concomitant]
     Indication: ANGIOTENSIN CONVERTING ENZYME DECREASED
     Route: 048
     Dates: start: 20120123
  13. NATRIUMHYDROGENCARBONAT [Concomitant]
     Indication: DRUG USE FOR UNKNOWN INDICATION
     Route: 048
  14. TRIMETHOPRIM [Concomitant]
     Indication: ANTIBIOTIC THERAPY
     Route: 048

REACTIONS (2)
  - Infection [Recovered/Resolved]
  - Bronchopneumonia [Recovered/Resolved]
